FAERS Safety Report 10081591 (Version 1)
Quarter: 2014Q2

REPORT INFORMATION
  Report Type: Spontaneous
  Country: US (occurrence: US)
  Receive Date: 20140416
  Receipt Date: 20140416
  Transmission Date: 20141212
  Serious: Yes (Other)
  Sender: FDA-Public Use
  Company Number: US-PFIZER INC-2014103904

PATIENT
  Age: 65 Year
  Sex: Male

DRUGS (2)
  1. LYRICA [Suspect]
     Dosage: UNK
  2. LYRICA [Suspect]
     Dosage: 150 MG, DAILY

REACTIONS (7)
  - Drug withdrawal syndrome [Unknown]
  - Major depression [Unknown]
  - Feeling abnormal [Unknown]
  - Pain in extremity [Unknown]
  - Anxiety [Unknown]
  - Abnormal behaviour [Unknown]
  - Insomnia [Unknown]
